FAERS Safety Report 4880287-1 (Version None)
Quarter: 2006Q1

REPORT INFORMATION
  Report Type: 
  Country: None (occurrence: None)
  Receive Date: 20060113
  Receipt Date: 20060102
  Transmission Date: 20060701
  Serious: Yes (Other)
  Sender: FDA-Public Use
  Company Number: US-ROCHE-430470

PATIENT

DRUGS (9)
  1. KLONOPIN [Suspect]
     Indication: DRUG USE FOR UNKNOWN INDICATION
  2. COPAXONE [Suspect]
     Indication: MULTIPLE SCLEROSIS
  3. TRILEPTAL [Suspect]
     Indication: DRUG USE FOR UNKNOWN INDICATION
  4. DARVOCET-N 50 [Suspect]
     Indication: DRUG USE FOR UNKNOWN INDICATION
  5. PROVIGIL [Concomitant]
  6. ZOLOFT [Concomitant]
  7. ALBUTEROL [Concomitant]
  8. DETROL LA [Concomitant]
  9. PRILOSEC [Concomitant]

REACTIONS (3)
  - DRUG EXPOSURE DURING PREGNANCY [None]
  - INTRA-UTERINE DEATH [None]
  - PREGNANCY [None]
